FAERS Safety Report 4755663-8 (Version None)
Quarter: 2005Q3

REPORT INFORMATION
  Report Type: 
  Country: None (occurrence: None)
  Receive Date: 20050830
  Receipt Date: 20050620
  Transmission Date: 20060218
  Serious: No
  Sender: FDA-Public Use
  Company Number: US-BRISTOL-MYERS SQUIBB COMPANY-13009238

PATIENT
  Age: 15 Year
  Sex: Male
  Weight: 66 kg

DRUGS (3)
  1. ABILIFY [Suspect]
     Indication: OBSESSIVE-COMPULSIVE DISORDER
  2. KLONOPIN [Concomitant]
  3. LITHIUM [Concomitant]

REACTIONS (1)
  - NAUSEA [None]
